FAERS Safety Report 5944195-7 (Version None)
Quarter: 2008Q4

REPORT INFORMATION
  Report Type: 
  Country: None (occurrence: None)
  Receive Date: 20081106
  Receipt Date: 20081027
  Transmission Date: 20090506
  Serious: Yes (Hospitalization)
  Sender: FDA-Public Use
  Company Number: ES-AMGEN-UK315599

PATIENT
  Age: 30 Year
  Sex: Male

DRUGS (4)
  1. MIMPARA [Suspect]
     Indication: HYPERPARATHYROIDISM SECONDARY
     Route: 048
     Dates: start: 20071231, end: 20080110
  2. PHENOBARBITAL TAB [Concomitant]
     Route: 048
  3. CARDURA [Concomitant]
     Route: 048
     Dates: start: 20080110
  4. CARVEDILOL [Concomitant]
     Route: 048
     Dates: start: 20080110

REACTIONS (4)
  - HAEMOLYTIC ANAEMIA [None]
  - HYPOTENSION [None]
  - MUCOSAL DISCOLOURATION [None]
  - VOMITING [None]
